FAERS Safety Report 14975119 (Version 1)
Quarter: 2018Q2

REPORT INFORMATION
  Report Type: Spontaneous
  Country: TW (occurrence: TW)
  Receive Date: 20180605
  Receipt Date: 20180605
  Transmission Date: 20180711
  Serious: Yes (Hospitalization)
  Sender: FDA-Public Use
  Company Number: TW-TOLMAR, INC.-2018TW005763

PATIENT

DRUGS (1)
  1. ELIGARD [Suspect]
     Active Substance: LEUPROLIDE ACETATE
     Indication: ENDOMETRIOSIS
     Dosage: UNK
     Route: 065

REACTIONS (3)
  - Off label use [Unknown]
  - Excessive granulation tissue [Unknown]
  - Product use in unapproved indication [Unknown]
